FAERS Safety Report 8359146-8 (Version None)
Quarter: 2012Q2

REPORT INFORMATION
  Report Type: 
  Country: None (occurrence: None)
  Receive Date: 20120511
  Receipt Date: 20120426
  Transmission Date: 20120825
  Serious: Yes (Hospitalization)
  Sender: FDA-Public Use
  Company Number: 1272329

PATIENT
  Age: 37 Year
  Sex: Female
  Weight: 39.4629 kg

DRUGS (2)
  1. TRAMADOL HYDROCHLORIDE [Suspect]
     Indication: MYALGIA
     Dosage: 50 MG MILLIGRAM(S), 1 DAY, ORAL
     Route: 048
  2. DOCETAXEL [Suspect]
     Indication: BREAST CANCER
     Dosage: 1 KBQ KILOBECQUEREL(S), INTRAVENOUS (NOT OTHERWISE SPECIFIED)
     Route: 042
     Dates: start: 20120403, end: 20120403

REACTIONS (1)
  - MYOSITIS [None]
